FAERS Safety Report 7146234-7 (Version None)
Quarter: 2010Q4

REPORT INFORMATION
  Report Type: 
  Country: None (occurrence: None)
  Receive Date: 20101208
  Receipt Date: 20101130
  Transmission Date: 20110411
  Serious: Yes (Other)
  Sender: FDA-Public Use
  Company Number: US-PFIZER INC-HQWYE795109OCT06

PATIENT
  Age: 37 Year
  Sex: Female
  Weight: 54 kg

DRUGS (5)
  1. ADVIL [Suspect]
     Indication: PAIN
     Dosage: 1-2 CAPLETS AS NEEDED
     Route: 048
  2. ADVIL [Suspect]
     Dosage: 2-3
     Route: 048
     Dates: start: 20101101, end: 20101101
  3. LIBRAX [Concomitant]
  4. MULTI-VITAMINS [Concomitant]
     Dosage: UNK
  5. CALCIUM [Concomitant]
     Dosage: UNK

REACTIONS (2)
  - COELIAC DISEASE [None]
  - THINKING ABNORMAL [None]
